FAERS Safety Report 4304775-1 (Version None)
Quarter: 2004Q1

REPORT INFORMATION
  Report Type: 
  Country: None (occurrence: None)
  Receive Date: 20040226
  Receipt Date: 20031208
  Transmission Date: 20041129
  Serious: No
  Sender: FDA-Public Use
  Company Number: US-GLAXOSMITHKLINE-A0442317A

PATIENT
  Age: 45 Year
  Sex: Female

DRUGS (5)
  1. WELLBUTRIN [Suspect]
     Indication: DEPRESSION
     Dosage: 150MG PER DAY
     Route: 048
     Dates: start: 20031202, end: 20031204
  2. ADVAIR DISKUS 100/50 [Concomitant]
  3. SINGULAIR [Concomitant]
  4. ALLEGRA [Concomitant]
  5. UNKNOWN MEDICATION [Concomitant]

REACTIONS (3)
  - AGITATION [None]
  - AMNESIA [None]
  - CHEST PAIN [None]
